FAERS Safety Report 9391006 (Version 1)
Quarter: 2013Q3

REPORT INFORMATION
  Report Type: Spontaneous
  Country: FR (occurrence: FR)
  Receive Date: 20130709
  Receipt Date: 20130709
  Transmission Date: 20140515
  Serious: Yes (Hospitalization, Other)
  Sender: FDA-Public Use
  Company Number: FR-ASTRAZENECA-2013SE50011

PATIENT
  Age: 37 Year
  Sex: Male

DRUGS (5)
  1. INEXIUM [Suspect]
     Dosage: ONCE/SINGLE ADMINISTRATION
     Route: 048
     Dates: start: 20121110, end: 20121110
  2. INEXIUM [Suspect]
     Route: 048
  3. BI-PROFENID [Suspect]
     Indication: PAIN
     Dosage: ONCE/SINGLE ADMINISTRATION
     Route: 048
     Dates: start: 20121110, end: 20121110
  4. TRAMADOL [Concomitant]
     Indication: PAIN
     Dates: start: 20121110
  5. ACUPAN [Concomitant]
     Dates: start: 20121110

REACTIONS (2)
  - Anaphylactoid reaction [Recovered/Resolved]
  - Anaphylactic reaction [Recovered/Resolved]
